FAERS Safety Report 17275972 (Version 1)
Quarter: 2020Q1

REPORT INFORMATION
  Report Type: Spontaneous
  Country: US (occurrence: US)
  Receive Date: 20200116
  Receipt Date: 20200116
  Transmission Date: 20200409
  Serious: Yes (Hospitalization)
  Sender: FDA-Public Use
  Company Number: US-SA-2020SA007275

PATIENT
  Age: 74 Year
  Sex: Male

DRUGS (1)
  1. ELITEK [Suspect]
     Active Substance: RASBURICASE
     Dosage: UNK
     Dates: start: 20190403

REACTIONS (2)
  - Oxygen saturation decreased [Unknown]
  - Methaemoglobinaemia [Unknown]

NARRATIVE: CASE EVENT DATE: 20190404
